FAERS Safety Report 5008966-6 (Version None)
Quarter: 2006Q2

REPORT INFORMATION
  Report Type: 
  Country: None (occurrence: None)
  Receive Date: 20060523
  Receipt Date: 20060516
  Transmission Date: 20061013
  Serious: Yes (Hospitalization)
  Sender: FDA-Public Use
  Company Number: 2006CG00875

PATIENT
  Age: 85 Year
  Sex: Female
  Weight: 68 kg

DRUGS (8)
  1. MOPRAL [Suspect]
     Indication: PROPHYLAXIS
     Route: 048
     Dates: end: 20060301
  2. ALDACTAZIDE [Interacting]
     Indication: ESSENTIAL HYPERTENSION
     Route: 048
     Dates: end: 20060223
  3. MORPHINE CHLORHYDRATE [Interacting]
     Indication: SPINAL COMPRESSION FRACTURE
     Route: 058
     Dates: start: 20060202, end: 20060203
  4. DEROXAT [Interacting]
     Indication: DEPRESSION
     Route: 048
     Dates: end: 20060223
  5. CORTANCYL [Interacting]
     Indication: OPTIC NEURITIS
     Route: 048
     Dates: start: 20050501
  6. CORTANCYL [Interacting]
     Route: 048
  7. SKENAN LP [Interacting]
     Indication: SPINAL COMPRESSION FRACTURE
     Route: 048
     Dates: start: 20060202, end: 20060210
  8. ACUPAN [Interacting]
     Indication: SPINAL COMPRESSION FRACTURE
     Route: 030
     Dates: start: 20060210, end: 20060216

REACTIONS (4)
  - CONFUSIONAL STATE [None]
  - DRUG INTERACTION [None]
  - HALLUCINATION [None]
  - HYPONATRAEMIA [None]
